FAERS Safety Report 4666877-X (Version None)
Quarter: 2005Q2

REPORT INFORMATION
  Report Type: 
  Country: None (occurrence: None)
  Receive Date: 20050518
  Receipt Date: 20041103
  Transmission Date: 20051028
  Serious: Yes (Other)
  Sender: FDA-Public Use
  Company Number: 2004242980US

PATIENT
  Age: 16 Year
  Sex: Female
  Weight: 63.5 kg

DRUGS (2)
  1. DEPO-PROVERA [Suspect]
     Indication: CONTRACEPTION
     Dosage: 150 MG, FIRST INJECTION, INTRAMUSCULAR
     Route: 030
     Dates: start: 20041021, end: 20041021
  2. VITAMINS [Concomitant]

REACTIONS (1)
  - UNINTENDED PREGNANCY [None]
